FAERS Safety Report 18962608 (Version 2)
Quarter: 2024Q4

REPORT INFORMATION
  Report Type: Spontaneous
  Country: CA (occurrence: CA)
  Receive Date: 20210303
  Receipt Date: 20241108
  Transmission Date: 20250114
  Serious: Yes (Hospitalization, Other)
  Sender: GLAXOSMITHKLINE
  Company Number: CA-GLAXOSMITHKLINE-CA2021GSK054643

PATIENT

DRUGS (3)
  1. BUPROPION HYDROCHLORIDE XL [Suspect]
     Active Substance: BUPROPION HYDROCHLORIDE
     Indication: Depression
     Dosage: UNK
     Route: 065
  2. QUETIAPINE [Suspect]
     Active Substance: QUETIAPINE
     Indication: Depression
     Dosage: UNK
     Route: 048
  3. ESCITALOPRAM [Suspect]
     Active Substance: ESCITALOPRAM OXALATE
     Indication: Depression
     Dosage: UNK
     Route: 065

REACTIONS (7)
  - Toxicity to various agents [Recovered/Resolved]
  - Sympathomimetic effect [Recovered/Resolved]
  - Cardiogenic shock [Recovered/Resolved]
  - Arrhythmia [Recovered/Resolved]
  - Seizure [Recovered/Resolved]
  - Product use issue [Unknown]
  - Product administered to patient of inappropriate age [Unknown]
